FAERS Safety Report 9125569 (Version 1)
Quarter: 2013Q1

REPORT INFORMATION
  Report Type: Spontaneous
  Country: US (occurrence: US)
  Receive Date: 20130227
  Receipt Date: 20130227
  Transmission Date: 20140127
  Serious: Yes (Hospitalization, Other)
  Sender: FDA-Public Use
  Company Number: US-009507513-1108USA02424

PATIENT
  Sex: Female

DRUGS (5)
  1. FOSAMAX [Suspect]
     Indication: OSTEOPOROSIS
     Dosage: 70 MG, UNK
     Route: 048
     Dates: start: 1998, end: 20080907
  2. FOSAMAX [Suspect]
     Dosage: 70 MG, QW
     Route: 048
     Dates: start: 20080808
  3. ACTONEL [Concomitant]
     Indication: OSTEOPOROSIS
     Dates: start: 2000, end: 2000
  4. VITAMIN D (UNSPECIFIED) [Concomitant]
     Dosage: 1 DF, QD
     Dates: start: 20100815, end: 20101017
  5. HORMONES (UNSPECIFIED) [Concomitant]

REACTIONS (28)
  - Femur fracture [Unknown]
  - Internal fixation of fracture [Unknown]
  - Uterine disorder [Unknown]
  - Anaemia postoperative [Unknown]
  - Mobility decreased [Unknown]
  - Thrombocytopenia [Unknown]
  - Hypokalaemia [Recovered/Resolved]
  - Osteoarthritis [Unknown]
  - Constipation [Unknown]
  - Vitamin D deficiency [Unknown]
  - Tooth disorder [Unknown]
  - Blood cholesterol increased [Unknown]
  - Arthritis [Unknown]
  - Foot fracture [Unknown]
  - Nasal disorder [Unknown]
  - Foot fracture [Unknown]
  - Skin ulcer [Unknown]
  - Meniscus injury [Unknown]
  - Osteoarthritis [Unknown]
  - Joint effusion [Unknown]
  - Meniscus injury [Unknown]
  - Actinic elastosis [Unknown]
  - Solar lentigo [Unknown]
  - Osteopenia [Unknown]
  - Hyperlipidaemia [Unknown]
  - Skin lesion [Unknown]
  - Osteogenesis imperfecta [Unknown]
  - Gastrooesophageal reflux disease [Unknown]
